FAERS Safety Report 7500286-0 (Version None)
Quarter: 2011Q2

REPORT INFORMATION
  Report Type: 
  Country: None (occurrence: None)
  Receive Date: 20110524
  Receipt Date: 20100503
  Transmission Date: 20111010
  Serious: No
  Sender: FDA-Public Use
  Company Number: US-NOVEN-ALL1-2010-02614

PATIENT

DRUGS (3)
  1. LORATADINE [Concomitant]
     Dosage: 10 MG, 1X/DAY:QD
     Route: 048
     Dates: start: 20100101
  2. NASONEX [Concomitant]
     Dosage: 50 UG, 1X/DAY:QD
     Route: 045
     Dates: start: 20100101
  3. DAYTRANA [Suspect]
     Dosage: UNK MG,1/2 OF A 20 MG PATCH 1X/DAY:QD
     Route: 062
     Dates: start: 20091101

REACTIONS (7)
  - APPLICATION SITE EXFOLIATION [None]
  - DRUG PRESCRIBING ERROR [None]
  - APPLICATION SITE ERYTHEMA [None]
  - APPLICATION SITE EROSION [None]
  - APPLICATION SITE DRYNESS [None]
  - WRONG TECHNIQUE IN DRUG USAGE PROCESS [None]
  - APPLICATION SITE SWELLING [None]
